FAERS Safety Report 8048341-3 (Version None)
Quarter: 2012Q1

REPORT INFORMATION
  Report Type: 
  Country: None (occurrence: None)
  Receive Date: 20120117
  Receipt Date: 20120109
  Transmission Date: 20120608
  Serious: Yes (Other)
  Sender: FDA-Public Use
  Company Number: US-PFIZER INC-2011309449

PATIENT
  Sex: Female
  Weight: 74.38 kg

DRUGS (6)
  1. VITAMIN D [Concomitant]
     Dosage: UNK
  2. NEURONTIN [Suspect]
     Indication: NEURALGIA
     Dosage: 300 MG, 3X/DAY
     Route: 048
     Dates: start: 20111017
  3. OMEPRAZOLE [Concomitant]
     Indication: GASTROOESOPHAGEAL REFLUX DISEASE
     Dosage: 10 MG, UNK
  4. IBUPROFEN [Concomitant]
     Dosage: UNK
  5. AMBIEN [Concomitant]
     Indication: INSOMNIA
     Dosage: 10 MG, UNK
  6. EVISTA [Concomitant]
     Indication: MENOPAUSE
     Dosage: 60 MG, 1X/DAY
     Route: 048

REACTIONS (2)
  - ACUTE SINUSITIS [None]
  - TINNITUS [None]
